FAERS Safety Report 10052444 (Version 1)
Quarter: 2014Q2

REPORT INFORMATION
  Report Type: Spontaneous
  Country: AU (occurrence: None)
  Receive Date: 20140401
  Receipt Date: 20140401
  Transmission Date: 20141212
  Serious: Yes (Other)
  Sender: FDA-Public Use
  Company Number: None

PATIENT
  Age: 22 Year
  Sex: Male
  Weight: 78 kg

DRUGS (1)
  1. PROSCAR [Suspect]
     Indication: ALOPECIA
     Dosage: A QUARTER OF A PILL ONCE DAILY TAKEN BY MOUTH
     Route: 048
     Dates: start: 20130121, end: 20130604

REACTIONS (4)
  - Erectile dysfunction [None]
  - Penile size reduced [None]
  - Ejaculation failure [None]
  - Amnesia [None]
